FAERS Safety Report 19647585 (Version 1)
Quarter: 2021Q3

REPORT INFORMATION
  Report Type: Report from Study
  Country: JP (occurrence: JP)
  Receive Date: 20210802
  Receipt Date: 20210802
  Transmission Date: 20211014
  Serious: Yes (Hospitalization)
  Sender: FDA-Public Use
  Company Number: JP-GILEAD-2020-0492148

PATIENT
  Age: 56 Year
  Sex: Male
  Weight: 70 kg

DRUGS (24)
  1. REMDESIVIR. [Suspect]
     Active Substance: REMDESIVIR
     Dosage: 100 MG, QD
     Route: 042
     Dates: start: 20200726
  2. CALONAL [Concomitant]
     Active Substance: ACETAMINOPHEN
     Dosage: 1500 MG
     Route: 065
     Dates: start: 20200725, end: 20200728
  3. FEBURIC [Concomitant]
     Active Substance: FEBUXOSTAT
     Indication: HYPERURICAEMIA
     Dosage: 10 MG, QD
     Route: 048
  4. NEXIUM [Concomitant]
     Active Substance: ESOMEPRAZOLE MAGNESIUM
     Dosage: 20 MG, QD
     Route: 048
  5. DECADRON [Concomitant]
     Active Substance: DEXAMETHASONE
     Indication: COVID-19
     Dates: start: 20200801, end: 20200807
  6. REMDESIVIR. [Suspect]
     Active Substance: REMDESIVIR
     Dosage: 100 MG, QD
     Route: 042
     Dates: start: 20200727
  7. REMDESIVIR. [Suspect]
     Active Substance: REMDESIVIR
     Dosage: 100 MG, QD
     Route: 042
     Dates: start: 20200728
  8. DECADRON [Concomitant]
     Active Substance: DEXAMETHASONE
     Indication: COVID-19
     Dosage: 6 MG, QD
     Route: 048
     Dates: start: 20200801, end: 20200807
  9. FEBURIC [Concomitant]
     Active Substance: FEBUXOSTAT
     Route: 048
  10. REMDESIVIR. [Suspect]
     Active Substance: REMDESIVIR
     Dosage: 100 MG, QD
     Route: 042
     Dates: start: 20200729
  11. HEPARIN CALCIUM [Concomitant]
     Active Substance: HEPARIN CALCIUM
     Indication: COVID-19
     Dosage: 500 IU, BID
     Route: 058
     Dates: start: 20200725, end: 20200729
  12. NAFAMOSTAT MESILATE [Suspect]
     Active Substance: NAFAMOSTAT MESYLATE
     Indication: COVID-19
     Dosage: 150 MG, BID
     Route: 041
     Dates: start: 20200725, end: 20200729
  13. NAFAMOSTAT MESILATE [Suspect]
     Active Substance: NAFAMOSTAT MESYLATE
     Dosage: 150 MG, BID
     Route: 041
     Dates: start: 20200801, end: 20200803
  14. HEPARIN CALCIUM [Concomitant]
     Active Substance: HEPARIN CALCIUM
     Dosage: 500 IU, BID
     Route: 058
     Dates: start: 20200801, end: 20200803
  15. AMLODIPINE [Concomitant]
     Active Substance: AMLODIPINE BESYLATE
     Indication: HYPERTENSION
     Dosage: UNK
     Route: 048
  16. TELMISARTAN. [Concomitant]
     Active Substance: TELMISARTAN
     Indication: HYPERTENSION
     Dosage: UNK
     Route: 048
  17. TELMISARTAN. [Concomitant]
     Active Substance: TELMISARTAN
     Route: 048
  18. ATORVASTATIN OD [Concomitant]
     Indication: DYSLIPIDAEMIA
     Dosage: 10 MG, QD
     Route: 048
  19. ATORVASTATIN [Concomitant]
     Active Substance: ATORVASTATIN
     Indication: DYSLIPIDAEMIA
     Route: 048
  20. REMDESIVIR. [Suspect]
     Active Substance: REMDESIVIR
     Indication: COVID-19
     Dosage: 200 MG, QD
     Route: 042
     Dates: start: 20200725
  21. REMDESIVIR. [Suspect]
     Active Substance: REMDESIVIR
     Dosage: 100 MG, QD
     Route: 042
     Dates: start: 20200801
  22. REMDESIVIR. [Suspect]
     Active Substance: REMDESIVIR
     Dosage: 100 MG, QD
     Route: 042
     Dates: start: 20200802
  23. REMDESIVIR. [Suspect]
     Active Substance: REMDESIVIR
     Dosage: 100 MG, QD
     Route: 042
     Dates: start: 20200803
  24. AMLODIPINE [Concomitant]
     Active Substance: AMLODIPINE BESYLATE
     Route: 048

REACTIONS (1)
  - Hepatic function abnormal [Recovered/Resolved]

NARRATIVE: CASE EVENT DATE: 20200801
